FAERS Safety Report 13243220 (Version 5)
Quarter: 2017Q2

REPORT INFORMATION
  Report Type: Spontaneous
  Country: US (occurrence: US)
  Receive Date: 20170217
  Receipt Date: 20170410
  Transmission Date: 20170830
  Serious: Yes (Life-Threatening, Hospitalization)
  Sender: FDA-Public Use
  Company Number: US-JNJFOC-20170214397

PATIENT
  Age: 71 Year
  Sex: Female

DRUGS (16)
  1. POTASSIUM [Concomitant]
     Active Substance: POTASSIUM
     Dosage: DOSE: 20 TAB
     Route: 065
  2. BRILINTA [Suspect]
     Active Substance: TICAGRELOR
     Indication: PRODUCT USED FOR UNKNOWN INDICATION
     Route: 065
  3. ATORVASTATIN [Concomitant]
     Active Substance: ATORVASTATIN
     Route: 065
  4. ASPIRIN. [Suspect]
     Active Substance: ASPIRIN
     Indication: PRODUCT USED FOR UNKNOWN INDICATION
     Route: 065
  5. ALLOPURINOL. [Concomitant]
     Active Substance: ALLOPURINOL
     Route: 065
  6. BRILINTA [Suspect]
     Active Substance: TICAGRELOR
     Indication: PRODUCT USED FOR UNKNOWN INDICATION
     Route: 065
  7. LEVEMIR [Concomitant]
     Active Substance: INSULIN DETEMIR
     Dosage: DOSE: 100 UNITS/ML
     Route: 065
  8. LOSARTAN. [Concomitant]
     Active Substance: LOSARTAN
     Route: 065
  9. DILTIAZEM. [Concomitant]
     Active Substance: DILTIAZEM
     Route: 065
  10. ELIQUIS [Concomitant]
     Active Substance: APIXABAN
     Route: 065
  11. AMIODARONE [Concomitant]
     Active Substance: AMIODARONE
     Route: 065
  12. FUROSEMIDE. [Concomitant]
     Active Substance: FUROSEMIDE
     Route: 065
  13. XARELTO [Suspect]
     Active Substance: RIVAROXABAN
     Indication: PRODUCT USED FOR UNKNOWN INDICATION
     Dosage: IN EVENING
     Route: 048
     Dates: start: 201611
  14. CLONIDINE. [Concomitant]
     Active Substance: CLONIDINE
     Route: 065
  15. XARELTO [Suspect]
     Active Substance: RIVAROXABAN
     Indication: PRODUCT USED FOR UNKNOWN INDICATION
     Route: 048
  16. CARVEDILOL. [Concomitant]
     Active Substance: CARVEDILOL
     Route: 065

REACTIONS (5)
  - Haemorrhoidal haemorrhage [Unknown]
  - Fall [Unknown]
  - Atrial thrombosis [Unknown]
  - Subarachnoid haemorrhage [Recovering/Resolving]
  - Constipation [Unknown]

NARRATIVE: CASE EVENT DATE: 20170228
